FAERS Safety Report 25838419 (Version 1)
Quarter: 2025Q3

REPORT INFORMATION
  Report Type: Spontaneous
  Country: US (occurrence: US)
  Receive Date: 20250923
  Receipt Date: 20250923
  Transmission Date: 20251020
  Serious: No
  Sender: MERCK SHARP & DOHME LLC
  Company Number: US-009507513-2325447

PATIENT
  Sex: Female

DRUGS (29)
  1. PEMBROLIZUMAB [Suspect]
     Active Substance: PEMBROLIZUMAB
     Indication: Endometrial cancer
  2. LENVATINIB MESYLATE [Suspect]
     Active Substance: LENVATINIB MESYLATE
     Indication: Endometrial cancer
     Dosage: 2X4 MG
     Route: 048
     Dates: start: 20250820
  3. AMBIEN [Concomitant]
     Active Substance: ZOLPIDEM TARTRATE
  4. ASPIRIN [Concomitant]
     Active Substance: ASPIRIN
  5. B6 NATURAL [Concomitant]
  6. BENEFIBER [Concomitant]
     Active Substance: STARCH, WHEAT
  7. CLARITIN [Concomitant]
     Active Substance: LORATADINE
  8. CRESTOR [Concomitant]
     Active Substance: ROSUVASTATIN CALCIUM
  9. CYMBALTA [Concomitant]
     Active Substance: DULOXETINE HYDROCHLORIDE
  10. GABAPENTIN [Concomitant]
     Active Substance: GABAPENTIN
  11. GINSENG ROOT [Concomitant]
  12. IMODIUM A-D [Concomitant]
     Active Substance: LOPERAMIDE HYDROCHLORIDE
  13. LANTUS SOLOS [Concomitant]
  14. LEVOTHYROXINE [Concomitant]
     Active Substance: LEVOTHYROXINE
  15. LOMOTIL [Concomitant]
     Active Substance: ATROPINE SULFATE\DIPHENOXYLATE HYDROCHLORIDE
  16. MAGNESIUM [Concomitant]
     Active Substance: MAGNESIUM
  17. METHOCARBAMOL [Concomitant]
     Active Substance: METHOCARBAMOL
  18. VITAMINS [Concomitant]
     Active Substance: VITAMINS
  19. NAPROXEN [Concomitant]
     Active Substance: NAPROXEN
  20. NOVOLOG [Concomitant]
     Active Substance: INSULIN ASPART
  21. OLANZAPINE [Concomitant]
     Active Substance: OLANZAPINE
  22. ONDANSETRON [Concomitant]
     Active Substance: ONDANSETRON
  23. VITAMINS [Concomitant]
     Active Substance: VITAMINS
  24. PRILOSEC OTC [Concomitant]
     Active Substance: OMEPRAZOLE MAGNESIUM
  25. PROCHLORPER [Concomitant]
  26. SYNTHROID [Concomitant]
     Active Substance: LEVOTHYROXINE SODIUM
  27. TRAMADOL HCL [Concomitant]
     Active Substance: TRAMADOL HYDROCHLORIDE
  28. ZOLOFT [Concomitant]
     Active Substance: SERTRALINE HYDROCHLORIDE
  29. ZYRTEC [Concomitant]
     Active Substance: CETIRIZINE HYDROCHLORIDE

REACTIONS (1)
  - Myopia [Not Recovered/Not Resolved]
